FAERS Safety Report 9382803 (Version 2)
Quarter: 2013Q3

REPORT INFORMATION
  Report Type: Report from Study
  Country: CA (occurrence: CA)
  Receive Date: 20130703
  Receipt Date: 20130715
  Transmission Date: 20140515
  Serious: Yes (Death, Hospitalization, Other)
  Sender: FDA-Public Use
  Company Number: CA-ABBOTT-13P-028-1112320-00

PATIENT
  Age: 81 Year
  Sex: Male
  Weight: 65.38 kg

DRUGS (2)
  1. LUPRON DEPOT [Suspect]
     Indication: PROSTATE CANCER
     Dosage: 4 MONTH DEPOT
     Dates: start: 20121112, end: 20130314
  2. ENSURE [Concomitant]
     Indication: PRODUCT USED FOR UNKNOWN INDICATION

REACTIONS (11)
  - Death [Fatal]
  - Decreased appetite [Unknown]
  - Vomiting [Unknown]
  - Dehydration [Unknown]
  - Intestinal obstruction [Unknown]
  - Haemorrhage [Unknown]
  - Metastatic neoplasm [Unknown]
  - Asthenia [Unknown]
  - Gait disturbance [Unknown]
  - Blood urine present [Unknown]
  - Dysphagia [Unknown]
